FAERS Safety Report 5904335-2 (Version None)
Quarter: 2008Q3

REPORT INFORMATION
  Report Type: 
  Country: None (occurrence: None)
  Receive Date: 20080909
  Receipt Date: 20080414
  Transmission Date: 20090109
  Serious: Yes (Death)
  Sender: FDA-Public Use
  Company Number: 163-20785-08031682

PATIENT
  Age: 71 Year
  Sex: Male

DRUGS (3)
  1. THALOMID [Suspect]
     Indication: MULTIPLE MYELOMA
     Dosage: 50 MG, QHS, ORAL ; 100MG, 50MG, DAILY, ORAL ; 200 MG, 1 IN 1 D, ORAL
     Route: 048
     Dates: start: 20071026, end: 20080201
  2. THALOMID [Suspect]
     Indication: MULTIPLE MYELOMA
     Dosage: 50 MG, QHS, ORAL ; 100MG, 50MG, DAILY, ORAL ; 200 MG, 1 IN 1 D, ORAL
     Route: 048
     Dates: start: 20071001, end: 20080301
  3. THALOMID [Suspect]
     Indication: MULTIPLE MYELOMA
     Dosage: 50 MG, QHS, ORAL ; 100MG, 50MG, DAILY, ORAL ; 200 MG, 1 IN 1 D, ORAL
     Route: 048
     Dates: start: 20080222

REACTIONS (1)
  - PNEUMONIA [None]
